FAERS Safety Report 24216389 (Version 6)
Quarter: 2024Q3

REPORT INFORMATION
  Report Type: Report from Study
  Country: CN (occurrence: CN)
  Receive Date: 20240816
  Receipt Date: 20240926
  Transmission Date: 20241017
  Serious: Yes (Hospitalization, Other)
  Sender: DR REDDYS
  Company Number: CN-RDY-CLI/CHN/24/0011652

PATIENT
  Age: 6 Month
  Sex: Male
  Weight: 6.9 kg

DRUGS (24)
  1. VIGABATRIN [Suspect]
     Active Substance: VIGABATRIN
     Indication: Infantile spasms
     Dosage: 2 BAGS A DAY
     Route: 048
     Dates: start: 20240722, end: 20240803
  2. VIGABATRIN [Suspect]
     Active Substance: VIGABATRIN
     Dosage: 2 BAGS A DAY
     Route: 048
     Dates: start: 20240804, end: 20240810
  3. VIGABATRIN [Suspect]
     Active Substance: VIGABATRIN
     Dosage: 2 BAGS A DAY
     Route: 048
     Dates: start: 20240811, end: 20240820
  4. VIGABATRIN [Suspect]
     Active Substance: VIGABATRIN
     Route: 065
     Dates: start: 20240821
  5. Ribavirin spray [Concomitant]
     Indication: Antiviral treatment
     Dates: start: 20240804, end: 20240808
  6. Vitamin AD drops [Concomitant]
     Indication: Vitamin supplementation
     Dates: start: 20240804, end: 20240809
  7. CEFTRIAXONE SODIUM [Concomitant]
     Active Substance: CEFTRIAXONE SODIUM
     Indication: Anti-infective therapy
     Route: 042
     Dates: start: 20240805, end: 20240809
  8. SODIUM CHLORIDE [Concomitant]
     Active Substance: SODIUM CHLORIDE
     Indication: Electrolyte imbalance
     Route: 042
     Dates: start: 20240803
  9. SODIUM CHLORIDE [Concomitant]
     Active Substance: SODIUM CHLORIDE
     Route: 042
     Dates: start: 20240804
  10. Chloral hydrate syrup [Concomitant]
     Indication: Sedation
     Route: 048
     Dates: start: 20240803
  11. DEXMEDETOMIDINE [Concomitant]
     Active Substance: DEXMEDETOMIDINE
     Indication: Sedation
     Dates: start: 20240803
  12. ACETAMINOPHEN [Concomitant]
     Active Substance: ACETAMINOPHEN
     Indication: Antipyresis
     Route: 048
     Dates: start: 20240802, end: 20240803
  13. ACETAMINOPHEN [Concomitant]
     Active Substance: ACETAMINOPHEN
     Dosage: REPEATED ON SAME DAY
     Route: 045
     Dates: start: 20240804
  14. Ibuprofen Suspension Solution [Concomitant]
     Indication: Antipyresis
     Route: 048
     Dates: start: 20240803
  15. Ibuprofen Suspension Solution [Concomitant]
     Route: 048
     Dates: start: 20240803
  16. Ibuprofen Suspension Solution [Concomitant]
     Route: 048
     Dates: start: 20240804
  17. Ibuprofen Suspension Solution [Concomitant]
     Route: 045
     Dates: start: 20240804, end: 20240805
  18. Ibuprofen suppository [Concomitant]
     Indication: Antipyresis
     Dates: start: 20240804
  19. HUMAN IMMUNOGLOBULIN G [Concomitant]
     Active Substance: HUMAN IMMUNOGLOBULIN G
     Indication: Kawasaki^s disease
     Route: 042
     Dates: start: 20240805
  20. HUMAN IMMUNOGLOBULIN G [Concomitant]
     Active Substance: HUMAN IMMUNOGLOBULIN G
     Route: 065
     Dates: start: 20240806
  21. Anti-cold granules [Concomitant]
     Indication: Respiratory tract infection
     Route: 048
     Dates: start: 20240802
  22. Open Throat Sword Spray [Concomitant]
     Indication: Respiratory tract infection
     Dates: start: 20240802
  23. Cefaclor dry suspension [Concomitant]
     Indication: Respiratory tract infection
     Route: 048
     Dates: start: 20240802
  24. Cefoperazone sodium sulbactam sodium (2:1) injection [Concomitant]
     Indication: Anti-infective therapy
     Route: 065
     Dates: start: 20240803, end: 20240805

REACTIONS (4)
  - Sepsis [Recovered/Resolved]
  - Bronchiolitis [Recovered/Resolved]
  - Kawasaki^s disease [Recovered/Resolved]
  - Respiratory tract infection [Recovered/Resolved]

NARRATIVE: CASE EVENT DATE: 20240801
